FAERS Safety Report 8809798 (Version 3)
Quarter: 2012Q4

REPORT INFORMATION
  Report Type: 
  Country: DE (occurrence: DE)
  Receive Date: 20120926
  Receipt Date: 20121121
  Transmission Date: 20130627
  Serious: Yes (Death)
  Sender: FDA-Public Use
  Company Number: DE-B.I. PHARMACEUTICALS,INC./RIDGEFIELD-2012-DE-02270DE

PATIENT
  Age: 85 Year
  Sex: Male

DRUGS (6)
  1. PRADAXA [Suspect]
     Indication: ATRIAL FIBRILLATION
     Dosage: 220 mg
     Dates: start: 2012, end: 201208
  2. SIMVASTATIN [Concomitant]
     Dosage: 1 anz
  3. MCP [Concomitant]
     Dosage: 75 anz
  4. TORASEMIDE [Concomitant]
     Dosage: 10 NR
  5. BISOPROLOL [Concomitant]
     Dosage: 2.5 NR
  6. FENTANYL [Concomitant]
     Dosage: 8.3333 mg

REACTIONS (2)
  - Respiratory failure [Fatal]
  - Pneumonia [Fatal]
